FAERS Safety Report 6252741-1 (Version None)
Quarter: 2009Q3

REPORT INFORMATION
  Report Type: 
  Country: None (occurrence: None)
  Receive Date: 20090701
  Receipt Date: 20090622
  Transmission Date: 20100115
  Serious: Yes (Hospitalization, Other)
  Sender: FDA-Public Use
  Company Number: PHEH2007US12136

PATIENT
  Sex: Male

DRUGS (1)
  1. AREDIA [Suspect]

REACTIONS (10)
  - ABDOMINAL NEOPLASM [None]
  - BACK DISORDER [None]
  - DEFORMITY [None]
  - INFECTION [None]
  - ORAL INFECTION [None]
  - ORAL PAIN [None]
  - OSTEONECROSIS [None]
  - PAIN [None]
  - SWELLING [None]
  - TOOTH EXTRACTION [None]
